FAERS Safety Report 20811973 (Version 2)
Quarter: 2022Q2

REPORT INFORMATION
  Report Type: Spontaneous
  Country: US (occurrence: US)
  Receive Date: 20220511
  Receipt Date: 20220616
  Transmission Date: 20220721
  Serious: Yes (Death)
  Sender: FDA-Public Use
  Company Number: US-MTPC-MTDA2022-0011223

PATIENT

DRUGS (2)
  1. RADICAVA [Suspect]
     Active Substance: EDARAVONE
     Indication: Amyotrophic lateral sclerosis
     Dosage: 60 MILLIGRAM FOR 10 DAYS
     Route: 042
     Dates: start: 20210912
  2. RADICAVA [Suspect]
     Active Substance: EDARAVONE
     Dosage: 60 MILLIGRAM 10 DAYS EVERY MONTH
     Route: 042

REACTIONS (1)
  - Disease progression [Fatal]
